FAERS Safety Report 11492136 (Version 1)
Quarter: 2015Q3

REPORT INFORMATION
  Report Type: Report from Study
  Country: NL (occurrence: NL)
  Receive Date: 20150910
  Receipt Date: 20150910
  Transmission Date: 20151125
  Serious: Yes (Hospitalization)
  Sender: FDA-Public Use
  Company Number: NL-ABBVIE-15P-114-1458080-00

PATIENT
  Age: 79 Year
  Sex: Female

DRUGS (1)
  1. DUODOPA [Suspect]
     Active Substance: CARBIDOPA\LEVODOPA
     Indication: PARKINSON^S DISEASE
     Dosage: MD 5.8, CD 2.1, ED 0.6, ND 0
     Route: 050
     Dates: start: 20080411

REACTIONS (1)
  - Wrist fracture [Not Recovered/Not Resolved]

NARRATIVE: CASE EVENT DATE: 20150828
